FAERS Safety Report 7789363-7 (Version None)
Quarter: 2011Q3

REPORT INFORMATION
  Report Type: 
  Country: None (occurrence: None)
  Receive Date: 20110930
  Receipt Date: 20110926
  Transmission Date: 20111222
  Serious: Yes (Other)
  Sender: FDA-Public Use
  Company Number: ES-GLAXOSMITHKLINE-B0750600A

PATIENT
  Age: 83 Year
  Sex: Male

DRUGS (9)
  1. FUROSEMIDE [Concomitant]
     Indication: CARDIAC FAILURE
  2. ATENOLOL [Concomitant]
     Indication: ARRHYTHMIA
  3. OMEPRAZOLE [Concomitant]
     Indication: PROPHYLAXIS
  4. SINEMET [Concomitant]
     Indication: PARKINSON'S DISEASE
  5. ALDACTONE [Concomitant]
     Indication: CARDIAC FAILURE
  6. REQUIP [Suspect]
     Indication: PARKINSON'S DISEASE
     Dosage: 8MG PER DAY
     Route: 065
  7. SINTROM [Concomitant]
     Indication: CARDIAC FAILURE
  8. ENALAPRIL MALEATE [Concomitant]
     Indication: ARRHYTHMIA
  9. DIGOXIN [Concomitant]
     Indication: ARRHYTHMIA

REACTIONS (4)
  - SOMNOLENCE [None]
  - DYSKINESIA [None]
  - HALLUCINATION, VISUAL [None]
  - CONFUSIONAL STATE [None]
